FAERS Safety Report 10195888 (Version 3)
Quarter: 2014Q2

REPORT INFORMATION
  Report Type: Report from Study
  Country: US (occurrence: US)
  Receive Date: 20140527
  Receipt Date: 20140618
  Transmission Date: 20141212
  Serious: Yes (Hospitalization, Other)
  Sender: FDA-Public Use
  Company Number: US-ASTELLAS-2014US003317

PATIENT
  Age: 6 Year
  Sex: Male

DRUGS (7)
  1. TACROLIMUS [Suspect]
     Indication: DERMATITIS ATOPIC
     Dosage: 0.03 %, ONCE DAILY
     Route: 061
     Dates: start: 20120315, end: 201207
  2. CORTICOSTEROID NOS [Concomitant]
     Indication: PRODUCT USED FOR UNKNOWN INDICATION
     Dosage: UNK UNK, UNKNOWN/D
     Route: 065
  3. ALBUTEROL SULFATE [Concomitant]
     Indication: ASTHMA
     Dosage: 2 PUFFS, EVERY 4 HOURS AS NEEDED
     Route: 055
     Dates: start: 2009
  4. ALBUTEROL SULFATE [Concomitant]
     Indication: COUGH
  5. FLONASE                            /00908302/ [Concomitant]
     Indication: NASAL CONGESTION
     Dosage: 1 PUFF EACH NOSTRIL, AT BEDTIME
     Route: 045
  6. QVAR [Concomitant]
     Indication: ASTHMA
     Dosage: 1 PUFF, TWICE DAILY
     Route: 055
  7. SINGULAIR [Concomitant]
     Indication: ASTHMA
     Dosage: 1 TABLET, ONCE DAILY
     Route: 065

REACTIONS (2)
  - Asthma [Unknown]
  - Asthma [Recovered/Resolved]
